FAERS Safety Report 5880663-4 (Version None)
Quarter: 2008Q3

REPORT INFORMATION
  Report Type: 
  Country: None (occurrence: None)
  Receive Date: 20080912
  Receipt Date: 20080603
  Transmission Date: 20090109
  Serious: No
  Sender: FDA-Public Use
  Company Number: US-ABBOTT-08P-163-0455358-00

PATIENT
  Sex: Female
  Weight: 70.37 kg

DRUGS (5)
  1. HUMIRA [Suspect]
     Indication: ANKYLOSING SPONDYLITIS
     Route: 058
     Dates: start: 20080529
  2. HUMIRA [Suspect]
     Indication: CROHN'S DISEASE
     Route: 058
     Dates: start: 20080501
  3. SERTRALINE [Concomitant]
     Indication: DEPRESSION
     Route: 048
  4. BUPROPION HCL [Concomitant]
     Indication: DEPRESSION
     Route: 048
  5. BIRTH CONTROL [Concomitant]
     Indication: CONTRACEPTION
     Route: 048

REACTIONS (1)
  - ACCIDENTAL EXPOSURE [None]
